FAERS Safety Report 6327353-1 (Version None)
Quarter: 2009Q3

REPORT INFORMATION
  Report Type: 
  Country: None (occurrence: None)
  Receive Date: 20090825
  Receipt Date: 20090812
  Transmission Date: 20100115
  Serious: Yes (Hospitalization)
  Sender: FDA-Public Use
  Company Number: US-WATSON-2009-06471

PATIENT
  Age: 71 Year
  Sex: Male

DRUGS (8)
  1. TESTOSTERONE CYPIONATE [Suspect]
     Indication: HYPOGONADISM MALE
     Dosage: 300 MG, Q 2 WEEKS
     Route: 030
     Dates: start: 20090810, end: 20090810
  2. TESTOSTERONE CYPIONATE [Suspect]
     Dosage: 300 MG, Q 2 WEEKS
     Route: 030
     Dates: start: 20090730, end: 20090730
  3. IMURAN                             /00001501/ [Concomitant]
     Indication: MYASTHENIA GRAVIS
  4. LASIX [Concomitant]
     Indication: DRUG USE FOR UNKNOWN INDICATION
  5. LYRICA [Concomitant]
     Indication: DRUG USE FOR UNKNOWN INDICATION
  6. MESTINON [Concomitant]
     Indication: DRUG USE FOR UNKNOWN INDICATION
  7. PREDNISONE TAB [Concomitant]
     Indication: DRUG USE FOR UNKNOWN INDICATION
  8. VYTORIN [Concomitant]
     Indication: DRUG USE FOR UNKNOWN INDICATION

REACTIONS (3)
  - CHILLS [None]
  - PULMONARY EMBOLISM [None]
  - PYREXIA [None]
